FAERS Safety Report 14844075 (Version 1)
Quarter: 2018Q2

REPORT INFORMATION
  Report Type: Spontaneous
  Country: US (occurrence: US)
  Receive Date: 20180503
  Receipt Date: 20180503
  Transmission Date: 20180711
  Serious: Yes (Other)
  Sender: FDA-Public Use
  Company Number: US-GILEAD-2018-0335919

PATIENT
  Age: 71 Year
  Sex: Male

DRUGS (4)
  1. RANEXA [Suspect]
     Active Substance: RANOLAZINE
     Indication: PRODUCT USED FOR UNKNOWN INDICATION
     Dosage: 500 MG, BID
     Route: 065
  2. AMIODARONE [Concomitant]
     Active Substance: AMIODARONE
  3. PLAVIX [Concomitant]
     Active Substance: CLOPIDOGREL BISULFATE
  4. RANEXA [Suspect]
     Active Substance: RANOLAZINE
     Dosage: 500 MG BID (1000 MG, CUT IN HALF)
     Route: 065

REACTIONS (6)
  - Ventricular tachycardia [Unknown]
  - Stent placement [Unknown]
  - Implantable defibrillator insertion [Unknown]
  - Catheterisation cardiac [Unknown]
  - Wrong technique in product usage process [Unknown]
  - Cardiac ablation [Unknown]

NARRATIVE: CASE EVENT DATE: 20180315
